FAERS Safety Report 19517373 (Version 5)
Quarter: 2021Q3

REPORT INFORMATION
  Report Type: Report from Study
  Country: US (occurrence: US)
  Receive Date: 20210712
  Receipt Date: 20210915
  Transmission Date: 20211014
  Serious: Yes (Hospitalization)
  Sender: FDA-Public Use
  Company Number: US-BIOGEN-2021BI01027482

PATIENT
  Age: 66 Year
  Sex: Female

DRUGS (5)
  1. PLEGRIDY [Suspect]
     Active Substance: PEGINTERFERON BETA-1A
     Dosage: SECOND DOSE (TITRATION)
     Route: 058
     Dates: start: 20210622
  2. DIFLUCAN [Suspect]
     Active Substance: FLUCONAZOLE
     Indication: PRODUCT USED FOR UNKNOWN INDICATION
     Route: 065
  3. PLEGRIDY [Suspect]
     Active Substance: PEGINTERFERON BETA-1A
     Dosage: PLEGRIDY DOSING AND FREQUENCY: 63MCG DAY 1 (06/08/2021); 94MCG DAY 15 THEN 125MCG DAY 29 AND EVER...
     Route: 058
     Dates: start: 20210706
  4. PLEGRIDY [Suspect]
     Active Substance: PEGINTERFERON BETA-1A
     Indication: MULTIPLE SCLEROSIS
     Dosage: FIRST DOSE (TITRATION)
     Route: 058
     Dates: start: 20210608
  5. PLEGRIDY [Suspect]
     Active Substance: PEGINTERFERON BETA-1A
     Indication: MULTIPLE SCLEROSIS
     Route: 058
     Dates: start: 20210608

REACTIONS (7)
  - Injection site swelling [Unknown]
  - Gastrointestinal fungal infection [Unknown]
  - Abdominal distension [Unknown]
  - Abdominal pain upper [Unknown]
  - Injection site pruritus [Not Recovered/Not Resolved]
  - Injection site erythema [Not Recovered/Not Resolved]
  - Diverticulitis [Not Recovered/Not Resolved]

NARRATIVE: CASE EVENT DATE: 202106
